FAERS Safety Report 10797286 (Version 3)
Quarter: 2015Q3

REPORT INFORMATION
  Report Type: Report from Study
  Country: US (occurrence: US)
  Receive Date: 20150216
  Receipt Date: 20150819
  Transmission Date: 20151125
  Serious: No
  Sender: FDA-Public Use
  Company Number: US-GILEAD-2015-0137262

PATIENT
  Age: 61 Year
  Sex: Male

DRUGS (11)
  1. LANTUS [Concomitant]
     Active Substance: INSULIN GLARGINE
  2. LISINOPRIL. [Concomitant]
     Active Substance: LISINOPRIL
  3. ADEMPAS [Concomitant]
     Active Substance: RIOCIGUAT
  4. SERTRALINE [Concomitant]
     Active Substance: SERTRALINE HYDROCHLORIDE
  5. WARFARIN [Concomitant]
     Active Substance: WARFARIN
  6. AMBRISENTAN [Suspect]
     Active Substance: AMBRISENTAN
     Indication: COR PULMONALE CHRONIC
     Dosage: 5 MG, QD
     Route: 065
     Dates: start: 20150127, end: 20150325
  7. SIMVASTATIN. [Concomitant]
     Active Substance: SIMVASTATIN
  8. NOVOLOG [Concomitant]
     Active Substance: INSULIN ASPART
  9. AMBRISENTAN [Suspect]
     Active Substance: AMBRISENTAN
     Indication: PULMONARY HYPERTENSION
  10. FENOFIBRATE. [Concomitant]
     Active Substance: FENOFIBRATE
  11. SOTALOL. [Concomitant]
     Active Substance: SOTALOL

REACTIONS (3)
  - Sinus congestion [Not Recovered/Not Resolved]
  - Sleep apnoea syndrome [Unknown]
  - Headache [Not Recovered/Not Resolved]

NARRATIVE: CASE EVENT DATE: 20150128
